FAERS Safety Report 6324357-X (Version None)
Quarter: 2009Q3

REPORT INFORMATION
  Report Type: 
  Country: None (occurrence: None)
  Receive Date: 20090824
  Receipt Date: 20090514
  Transmission Date: 20100115
  Serious: No
  Sender: FDA-Public Use
  Company Number: US-ABBOTT-09P-163-0573732-00

PATIENT
  Sex: Female
  Weight: 58.112 kg

DRUGS (3)
  1. NIASPAN [Suspect]
     Indication: BLOOD CHOLESTEROL INCREASED
     Dates: start: 20090401
  2. NIASPAN [Suspect]
     Dates: start: 20090301, end: 20090401
  3. OXYGEN [Concomitant]
     Indication: EMPHYSEMA

REACTIONS (1)
  - RASH MACULAR [None]
